FAERS Safety Report 20674896 (Version 1)
Quarter: 2022Q2

REPORT INFORMATION
  Report Type: Spontaneous
  Country: US (occurrence: US)
  Receive Date: 20220405
  Receipt Date: 20220405
  Transmission Date: 20220721
  Serious: Yes (Other)
  Sender: FDA-Public Use
  Company Number: US-RECORDATI RARE DISEASE INC.-2021002064

PATIENT
  Sex: Female

DRUGS (1)
  1. CHEMET [Suspect]
     Active Substance: SUCCIMER
     Indication: Metal poisoning
     Dosage: 5 TABLETS A DAY, 3 TIMES A WEEK
     Route: 065

REACTIONS (7)
  - Neuropathy peripheral [Unknown]
  - Condition aggravated [Unknown]
  - Memory impairment [Unknown]
  - Product availability issue [Recovered/Resolved]
  - Therapy interrupted [Unknown]
  - Off label use [Unknown]
  - Headache [Unknown]
